FAERS Safety Report 12203883 (Version 1)
Quarter: 2016Q1

REPORT INFORMATION
  Report Type: Spontaneous
  Country: GB (occurrence: GB)
  Receive Date: 20160323
  Receipt Date: 20160323
  Transmission Date: 20160526
  Serious: No
  Sender: FDA-Public Use
  Company Number: GB-B. BRAUN MEDICAL INC.-1049478

PATIENT
  Age: 62 Year
  Sex: Female

DRUGS (1)
  1. STERILE WATER FOR INJECTION [Suspect]
     Active Substance: WATER
     Route: 042

REACTIONS (3)
  - Medical device site infection [None]
  - Serratia infection [None]
  - Suspected transmission of an infectious agent via product [None]
